FAERS Safety Report 7953753-X (Version None)
Quarter: 2011Q4

REPORT INFORMATION
  Report Type: 
  Country: None (occurrence: None)
  Receive Date: 20111129
  Receipt Date: 20111116
  Transmission Date: 20120403
  Serious: Yes (Other)
  Sender: FDA-Public Use
  Company Number: 2008-184829-NL

PATIENT
  Age: 29 Year
  Sex: Female
  Weight: 70.3075 kg

DRUGS (1)
  1. NUVARING [Suspect]
     Indication: CONTRACEPTION
     Dosage: VAG
     Route: 067
     Dates: start: 20060801, end: 20070730

REACTIONS (4)
  - PULMONARY EMBOLISM [None]
  - PULMONARY INFARCTION [None]
  - URINARY TRACT INFECTION [None]
  - ATELECTASIS [None]
